FAERS Safety Report 8831431 (Version 8)
Quarter: 2013Q3

REPORT INFORMATION
  Report Type: Spontaneous
  Country: US (occurrence: US)
  Receive Date: 20121009
  Receipt Date: 20130806
  Transmission Date: 20140515
  Serious: Yes (Hospitalization, Disabling, Other)
  Sender: FDA-Public Use
  Company Number: US-009507513-1112USA01779

PATIENT
  Sex: Female
  Weight: 68.27 kg

DRUGS (3)
  1. FOSAMAX [Suspect]
     Indication: OSTEOPENIA
     Dosage: UNK
     Route: 048
     Dates: start: 199810, end: 200810
  2. FOSAMAX [Suspect]
     Indication: OSTEOPOROSIS
     Dosage: 70 MG, QW
     Route: 048
  3. VITAMINS (UNSPECIFIED) [Concomitant]
     Dosage: UNK
     Route: 048
     Dates: start: 1970

REACTIONS (26)
  - Femur fracture [Not Recovered/Not Resolved]
  - Open reduction of fracture [Not Recovered/Not Resolved]
  - Breast cancer [Unknown]
  - Spinal fusion surgery [Unknown]
  - Spinal operation [Unknown]
  - Spinal operation [Unknown]
  - Neck surgery [Unknown]
  - Neck surgery [Unknown]
  - Essential tremor [Unknown]
  - Depression [Unknown]
  - Neck surgery [Unknown]
  - Anxiety [Unknown]
  - Fear [Unknown]
  - Tooth extraction [Unknown]
  - Sciatica [Unknown]
  - Mucosal dryness [Unknown]
  - Anaemia [Unknown]
  - Pallor [Unknown]
  - Fatigue [Not Recovered/Not Resolved]
  - Bipolar disorder [Unknown]
  - Obsessive-compulsive disorder [Unknown]
  - Mitral valve prolapse [Unknown]
  - Hypothyroidism [Unknown]
  - Dysfunctional uterine bleeding [Unknown]
  - Dry mouth [Unknown]
  - Arthralgia [Unknown]
